FAERS Safety Report 5899920-0 (Version None)
Quarter: 2008Q3

REPORT INFORMATION
  Report Type: 
  Country: None (occurrence: None)
  Receive Date: 20080926
  Receipt Date: 20080922
  Transmission Date: 20090109
  Serious: Yes (Hospitalization)
  Sender: FDA-Public Use
  Company Number: A0745536A

PATIENT
  Age: 55 Year
  Sex: Female

DRUGS (5)
  1. LAPATINIB [Suspect]
     Indication: BREAST CANCER METASTATIC
     Dosage: 1500MG PER DAY
     Route: 048
     Dates: start: 20080821
  2. PACLITAXEL [Suspect]
     Indication: BREAST CANCER METASTATIC
     Dosage: 80MGM2 CYCLIC
     Route: 042
     Dates: start: 20080821
  3. ETIMICIN [Concomitant]
     Dosage: .2G PER DAY
     Route: 042
     Dates: start: 20080901
  4. VITAMIN TAB [Concomitant]
     Dosage: 2G PER DAY
     Route: 042
     Dates: start: 20080901
  5. CEFOPERAZONE + SULBACTAM [Concomitant]
     Indication: BREAST CANCER METASTATIC
     Dosage: 4G PER DAY
     Route: 042
     Dates: start: 20080902

REACTIONS (2)
  - LEUKOPENIA [None]
  - NEUTROPENIA [None]
